FAERS Safety Report 19947453 (Version 1)
Quarter: 2021Q4

REPORT INFORMATION
  Report Type: Spontaneous
  Country: IT (occurrence: IT)
  Receive Date: 20211013
  Receipt Date: 20211013
  Transmission Date: 20220303
  Serious: Yes (Life-Threatening, Hospitalization, Other)
  Sender: FDA-Public Use
  Company Number: IT-ASTRAZENECA-2021A633392

PATIENT
  Age: 50 Year
  Sex: Female

DRUGS (21)
  1. CARBOPLATIN [Suspect]
     Active Substance: CARBOPLATIN
     Indication: Ovarian cancer
     Dosage: .UNIT DOSE:500MILLIGRAM
     Route: 042
  2. CARBOPLATIN [Suspect]
     Active Substance: CARBOPLATIN
     Dosage: .UNIT DOSE;550MILLIGRAM
     Route: 042
  3. CARBOPLATIN [Suspect]
     Active Substance: CARBOPLATIN
     Dosage: .UNIT DOSE:660MILLIGRAM
     Route: 042
  4. CARBOPLATIN [Suspect]
     Active Substance: CARBOPLATIN
     Dosage: .UNIT DOSE:600MILLIGRAM
     Route: 042
  5. CARBOPLATIN [Suspect]
     Active Substance: CARBOPLATIN
     Dosage: .UNIT DOSE:600MILLIGRAM
     Route: 042
  6. DURVALUMAB [Suspect]
     Active Substance: DURVALUMAB
     Indication: Ovarian cancer
     Dosage: .UNIT DOSE:22ML
     Route: 042
  7. DURVALUMAB [Suspect]
     Active Substance: DURVALUMAB
     Dosage: .UNIT DOSE:22ML
     Route: 042
  8. DURVALUMAB [Suspect]
     Active Substance: DURVALUMAB
     Dosage: .UNIT DOSE:22ML
     Route: 042
  9. DURVALUMAB [Suspect]
     Active Substance: DURVALUMAB
     Dosage: .UNIT DOSE:22ML
     Route: 042
  10. OLAPARIB [Suspect]
     Active Substance: OLAPARIB
     Indication: Ovarian cancer
     Route: 048
  11. CLEXANE (ENOXAPERINE) [Concomitant]
     Indication: Peripheral venous disease
     Route: 058
     Dates: start: 20210317
  12. CHLORPHENIRAMINE MALEATE [Concomitant]
     Active Substance: CHLORPHENIRAMINE MALEATE
     Indication: Premedication
     Dosage: 10MILLIGRAM
     Route: 042
     Dates: start: 20210317
  13. ONDANSETRON [Concomitant]
     Active Substance: ONDANSETRON
     Indication: Premedication
     Dosage: .UNIT DOSE:8MILLIGRAM
     Route: 042
     Dates: start: 20210317
  14. TARDYFER (FERRUM SULPHATE) [Concomitant]
     Indication: Anaemia postoperative
     Dosage: UNIT DOSE:1DOSAGEFORM
     Route: 048
     Dates: start: 20210216
  15. DEXAMETHASONE [Concomitant]
     Active Substance: DEXAMETHASONE
     Indication: Premedication
     Dosage: UNIT DOSE:20MILLIGRAM
     Route: 042
     Dates: start: 20210317
  16. OMEPRAZOLE [Concomitant]
     Active Substance: OMEPRAZOLE
     Indication: Premedication
     Dosage: UNIT DOSE:20MILLIGRAM
     Route: 048
     Dates: start: 20210317
  17. BEVACIZUMAB [Concomitant]
     Active Substance: BEVACIZUMAB
     Indication: Ovarian cancer
     Dosage: UNIT DOSE:1110MILLIGRAM
     Route: 042
  18. BEVACIZUMAB [Concomitant]
     Active Substance: BEVACIZUMAB
     Dosage: UNIT DOSE:1140MILLIGRAM
     Route: 042
  19. BEVACIZUMAB [Concomitant]
     Active Substance: BEVACIZUMAB
     Dosage: UNIT DOSE:1140MILLIGRAM
     Route: 042
  20. BEVACIZUMAB [Concomitant]
     Active Substance: BEVACIZUMAB
     Dosage: UNIT DOSE:1140MILLIGRAM
     Route: 042
  21. PACLITAXEL [Concomitant]
     Active Substance: PACLITAXEL
     Indication: Ovarian cancer
     Dosage: UNIT DOSE:30MILLIGRAM
     Route: 042

REACTIONS (1)
  - Thrombocytopenia [Recovered/Resolved]

NARRATIVE: CASE EVENT DATE: 20210720
